FAERS Safety Report 9668672 (Version 1)
Quarter: 2013Q4

REPORT INFORMATION
  Report Type: Spontaneous
  Country: US (occurrence: US)
  Receive Date: 20131105
  Receipt Date: 20131105
  Transmission Date: 20140711
  Serious: No
  Sender: FDA-Public Use
  Company Number: US-TEVA-441636USA

PATIENT
  Age: 9 Month
  Sex: Female
  Weight: 8.63 kg

DRUGS (3)
  1. PROAIR HFA [Suspect]
     Indication: BRONCHITIS
     Dates: start: 20131028, end: 20131028
  2. QVAR [Suspect]
     Indication: BRONCHITIS
     Dosage: 2 PUFFS, 40 MCG, TWICE A DAY
     Route: 048
     Dates: start: 20131028, end: 20131028
  3. CHILDREN^S TYLENOL [Concomitant]
     Indication: PYREXIA

REACTIONS (3)
  - Psychomotor hyperactivity [Recovered/Resolved]
  - Insomnia [Recovered/Resolved]
  - Off label use [Recovered/Resolved]
